FAERS Safety Report 7754505-6 (Version None)
Quarter: 2011Q3

REPORT INFORMATION
  Report Type: 
  Country: None (occurrence: None)
  Receive Date: 20110915
  Receipt Date: 20110908
  Transmission Date: 20111222
  Serious: Yes (Other)
  Sender: FDA-Public Use
  Company Number: JP-PFIZER INC-2011120190

PATIENT
  Age: 69 Year
  Sex: Male

DRUGS (5)
  1. ELASPOL [Concomitant]
     Dosage: UNK
     Route: 041
  2. VANCOMYCIN HCL [Suspect]
     Indication: BACTERIAL DISEASE CARRIER
     Dosage: UNK
     Route: 041
     Dates: start: 20110527, end: 20110601
  3. FLUCONAZOLE [Suspect]
     Indication: BLOOD BETA-D-GLUCAN INCREASED
     Dosage: UNK
     Route: 041
     Dates: start: 20110603, end: 20110618
  4. ALBUMIN NORMAL HUMAN SERUM [Concomitant]
     Dosage: UNK
     Route: 041
  5. FULCALIQ [Concomitant]
     Dosage: UNK
     Route: 041

REACTIONS (1)
  - RENAL IMPAIRMENT [None]
